APPROVED DRUG PRODUCT: EFFEXOR
Active Ingredient: VENLAFAXINE HYDROCHLORIDE
Strength: EQ 75MG BASE **Federal Register determination that product was not discontinued or withdrawn for safety or effectiveness reasons**
Dosage Form/Route: TABLET;ORAL
Application: N020151 | Product #004
Applicant: WYETH PHARMACEUTICALS INC
Approved: Dec 28, 1993 | RLD: Yes | RS: No | Type: DISCN